FAERS Safety Report 6243728-3 (Version None)
Quarter: 2009Q2

REPORT INFORMATION
  Report Type: 
  Country: None (occurrence: None)
  Receive Date: 20090618
  Receipt Date: 20090324
  Transmission Date: 20091009
  Serious: Yes (Other)
  Sender: FDA-Public Use
  Company Number: CIP07002332

PATIENT
  Sex: Female

DRUGS (8)
  1. ACTONEL [Suspect]
     Dosage: 35 MG UNKNOWN, ORAL
     Route: 048
     Dates: start: 20031113, end: 20060301
  2. PREDNISONE TAB [Concomitant]
  3. SYNTHROID [Concomitant]
  4. FORADIL [Concomitant]
  5. LEXAPRO [Concomitant]
  6. YEAST TAB [Concomitant]
  7. CALCIUM (CALCIUM) [Concomitant]
  8. EFEXOR /01233801/ (VENLAFAXINE) [Concomitant]

REACTIONS (22)
  - ANXIETY [None]
  - DENTAL CARIES [None]
  - DENTAL FISTULA [None]
  - GINGIVAL INFECTION [None]
  - IMPAIRED HEALING [None]
  - INDURATION [None]
  - JAW DISORDER [None]
  - LOOSE TOOTH [None]
  - NECK PAIN [None]
  - ODYNOPHAGIA [None]
  - OEDEMA MOUTH [None]
  - ORAL PAIN [None]
  - OSTEOMYELITIS [None]
  - OSTEONECROSIS [None]
  - PAIN IN JAW [None]
  - PERIODONTAL DISEASE [None]
  - PRIMARY SEQUESTRUM [None]
  - PURULENCE [None]
  - SINUSITIS [None]
  - SWELLING FACE [None]
  - TOOTH FRACTURE [None]
  - WEIGHT DECREASED [None]
